FAERS Safety Report 17233586 (Version 1)
Quarter: 2020Q1

REPORT INFORMATION
  Report Type: Spontaneous
  Country: IT (occurrence: IT)
  Receive Date: 20200105
  Receipt Date: 20200105
  Transmission Date: 20200409
  Serious: Yes (Other)
  Sender: FDA-Public Use
  Company Number: IT-ROCHE-2508270

PATIENT
  Age: 76 Year
  Sex: Female

DRUGS (4)
  1. ECOCAIN [Suspect]
     Active Substance: LIDOCAINE HYDROCHLORIDE
     Indication: LOCAL ANAESTHESIA
     Route: 065
  2. VALIUM [Suspect]
     Active Substance: DIAZEPAM
     Indication: SEDATION
     Route: 065
  3. IPNOVEL [MIDAZOLAM] [Suspect]
     Active Substance: MIDAZOLAM HYDROCHLORIDE
     Indication: SEDATION
     Route: 065
  4. PETHIDINE HYDROCHLORIDE [Suspect]
     Active Substance: MEPERIDINE HYDROCHLORIDE
     Indication: ANAESTHESIA
     Route: 065

REACTIONS (1)
  - Asthenia [Recovering/Resolving]
